FAERS Safety Report 16924447 (Version 2)
Quarter: 2022Q1

REPORT INFORMATION
  Report Type: Spontaneous
  Country: CH (occurrence: CH)
  Receive Date: 20191016
  Receipt Date: 20220203
  Transmission Date: 20220423
  Serious: Yes (Hospitalization, Other)
  Sender: FDA-Public Use
  Company Number: CH-SM-2019-16867

PATIENT
  Age: 83 Year
  Sex: Female

DRUGS (4)
  1. AMLODIPINE MESYLATE [Suspect]
     Active Substance: AMLODIPINE MESYLATE
     Dosage: SUICIDE ATTEMPT BY DRUG OVERDOSE WITH AN UNSPECIFIED QUANTITY OF DRUG
     Route: 048
     Dates: start: 20190927, end: 20190927
  2. ATACAND [Suspect]
     Active Substance: CANDESARTAN CILEXETIL
     Dosage: SUICIDE ATTEMPT BY DRUG OVERDOSE WITH AN UNSPECIFIED QUANTITY OF DRUG
     Route: 048
     Dates: start: 20190927, end: 20190927
  3. CALCIUM\CHOLECALCIFEROL [Suspect]
     Active Substance: CALCIUM\CHOLECALCIFEROL
     Dosage: SUICIDE ATTEMPT BY DRUG OVERDOSE WITH AN UNSPECIFIED QUANTITY OF DRUG
     Route: 048
     Dates: start: 20190927, end: 20190927
  4. PHENYTOIN [Suspect]
     Active Substance: PHENYTOIN
     Dosage: SUICIDE ATTEMPT BY DRUG OVERDOSE WITH A BLISTER OF PHENYTOIN - GEROT,  100 MG
     Route: 048
     Dates: start: 20190927, end: 20190927

REACTIONS (5)
  - Electrocardiogram QT prolonged [Recovered/Resolved]
  - Suicide attempt [Recovered/Resolved]
  - Psychomotor retardation [Recovered/Resolved]
  - Intentional overdose [Recovered/Resolved]
  - Vomiting [Recovered/Resolved]

NARRATIVE: CASE EVENT DATE: 20190927
